FAERS Safety Report 11112216 (Version 1)
Quarter: 2015Q2

REPORT INFORMATION
  Report Type: Spontaneous
  Country: US (occurrence: None)
  Receive Date: 20150513
  Receipt Date: 20150513
  Transmission Date: 20150821
  Serious: No
  Sender: FDA-Public Use
  Company Number: None

PATIENT
  Age: 60 Year
  Sex: Female

DRUGS (4)
  1. SOVALDI [Concomitant]
     Active Substance: SOFOSBUVIR
  2. TRAMADOL [Concomitant]
     Active Substance: TRAMADOL
  3. LEVOTHYROXIN [Concomitant]
     Active Substance: LEVOTHYROXINE
  4. RIBAVIRIN 200 MG ZYDUS PHARMACEUTICALS [Suspect]
     Active Substance: RIBAVIRIN
     Indication: HEPATITIS
     Dosage: 200 MG  3 IN AM  2 IN PM  ORAL
     Route: 048
     Dates: start: 20150331

REACTIONS (3)
  - Nausea [None]
  - Dizziness [None]
  - Headache [None]

NARRATIVE: CASE EVENT DATE: 201504
